FAERS Safety Report 13863909 (Version 3)
Quarter: 2017Q3

REPORT INFORMATION
  Report Type: Report from Study
  Country: US (occurrence: US)
  Receive Date: 20170814
  Receipt Date: 20170825
  Transmission Date: 20171127
  Serious: Yes (Hospitalization, Other)
  Sender: FDA-Public Use
  Company Number: US-PFIZER INC-2017312606

PATIENT
  Age: 89 Year
  Sex: Female

DRUGS (3)
  1. IBRANCE [Suspect]
     Active Substance: PALBOCICLIB
     Indication: BREAST CANCER
     Dosage: 125 MG, CYCLIC (DAILY, 3 WEEKS ON/1 WEEK OFF)
     Route: 048
     Dates: start: 20170703, end: 20170724
  2. LETROZOLE. [Concomitant]
     Active Substance: LETROZOLE
     Indication: BREAST CANCER
     Dosage: UNK UNK, DAILY
     Dates: start: 20170731
  3. IBRANCE [Suspect]
     Active Substance: PALBOCICLIB
     Dosage: 125 MG, DAILY
     Route: 048
     Dates: start: 20170630, end: 20170731

REACTIONS (11)
  - Bone marrow failure [Unknown]
  - Drooling [Unknown]
  - Fatigue [Unknown]
  - Tumour lysis syndrome [Unknown]
  - Neoplasm progression [Unknown]
  - Staphylococcal infection [Recovered/Resolved]
  - Sepsis [Recovering/Resolving]
  - Wound infection [Unknown]
  - Acute kidney injury [Unknown]
  - Asthenia [Unknown]
  - Infection [Unknown]

NARRATIVE: CASE EVENT DATE: 2017
